FAERS Safety Report 8182212-7 (Version None)
Quarter: 2012Q1

REPORT INFORMATION
  Report Type: 
  Country: None (occurrence: None)
  Receive Date: 20120302
  Receipt Date: 20120223
  Transmission Date: 20120608
  Serious: Yes (Hospitalization)
  Sender: FDA-Public Use
  Company Number: PHHY2012SI004945

PATIENT
  Age: 55 Year
  Sex: Male

DRUGS (5)
  1. CLOZAPINE [Concomitant]
     Dosage: 50 MG, TID
  2. LORAZEPAM [Suspect]
     Indication: SCHIZOPHRENIA, PARANOID TYPE
     Dosage: 2.5 MG, TID
  3. BROMOCRIPTINE MESYLATE [Concomitant]
     Dosage: 2 MG, TID
  4. BROMOCRIPTINE MESYLATE [Concomitant]
     Dosage: 5 MG, TID
  5. LORAZEPAM [Suspect]
     Dosage: 5 MG, TID

REACTIONS (6)
  - FEELING ABNORMAL [None]
  - POSTURE ABNORMAL [None]
  - MOVEMENT DISORDER [None]
  - PYREXIA [None]
  - UNRESPONSIVE TO STIMULI [None]
  - NEUROLEPTIC MALIGNANT SYNDROME [None]
